FAERS Safety Report 8448614-6 (Version None)
Quarter: 2012Q2

REPORT INFORMATION
  Report Type: 
  Country: None (occurrence: None)
  Receive Date: 20120619
  Receipt Date: 20120607
  Transmission Date: 20120825
  Serious: Yes (Hospitalization, Other)
  Sender: FDA-Public Use
  Company Number: US-MYLANLABS-2009AC000451

PATIENT
  Age: 79 Year
  Sex: Male

DRUGS (34)
  1. DIGOXIN [Suspect]
     Route: 048
     Dates: start: 20070910
  2. ATACAND [Concomitant]
  3. NIASPAN [Concomitant]
  4. CRESTOR [Concomitant]
  5. CLARITHROMYCIN [Concomitant]
  6. FLAGYL [Concomitant]
  7. MINOXIDIL [Concomitant]
  8. NITROGLYCERIN [Concomitant]
  9. AMIODARONE HYDROCHLORIDE [Concomitant]
  10. HYDRALAZINE HYDROCHLORIDE [Concomitant]
  11. CALCITROL /00508501/ [Concomitant]
  12. AMBIEN [Concomitant]
  13. METOPROLOL SUCCINATE [Concomitant]
  14. ZOCOR [Concomitant]
  15. PROTONIX [Concomitant]
  16. ASPIRIN [Concomitant]
  17. PLAVIX [Concomitant]
  18. METRONIDAZOLE [Concomitant]
  19. GLIPIZIDE [Concomitant]
  20. LOTREL [Concomitant]
  21. LIDOCAINE [Concomitant]
  22. ZYMAR [Concomitant]
  23. PANTOPRAZOLE [Concomitant]
  24. ISOSORBIDE [Concomitant]
  25. SIMVASTATIN [Concomitant]
  26. PROMETHAZINE [Concomitant]
  27. NORVASC [Concomitant]
  28. CALCIUM [Concomitant]
  29. COZAAR [Concomitant]
  30. FUROSEMIDE [Concomitant]
  31. CARVEDILOL [Concomitant]
  32. GLIPIZIDE [Concomitant]
  33. ZESTRIL [Concomitant]
  34. ATENOLOL [Concomitant]

REACTIONS (37)
  - PAIN [None]
  - IRRITABILITY [None]
  - COLD SWEAT [None]
  - VOMITING [None]
  - RENAL FAILURE [None]
  - ANAEMIA [None]
  - GASTROINTESTINAL HAEMORRHAGE [None]
  - HYPERTENSIVE NEPHROPATHY [None]
  - SINUS HEADACHE [None]
  - HYPERPARATHYROIDISM [None]
  - VISUAL IMPAIRMENT [None]
  - OVERDOSE [None]
  - HEART RATE IRREGULAR [None]
  - SICK SINUS SYNDROME [None]
  - HYPERTENSION [None]
  - SINUS CONGESTION [None]
  - DYSPNOEA [None]
  - CORONARY ARTERY DISEASE [None]
  - COUGH [None]
  - INJURY [None]
  - TOXICITY TO VARIOUS AGENTS [None]
  - PALPITATIONS [None]
  - ECONOMIC PROBLEM [None]
  - ILL-DEFINED DISORDER [None]
  - NAUSEA [None]
  - CARDIOMYOPATHY [None]
  - NEPHROTIC SYNDROME [None]
  - EMOTIONAL DISORDER [None]
  - CATHETERISATION CARDIAC [None]
  - ANHEDONIA [None]
  - RENAL FAILURE CHRONIC [None]
  - HYPERLIPIDAEMIA [None]
  - ATRIAL FIBRILLATION [None]
  - BLOOD PRESSURE INCREASED [None]
  - DIABETES MELLITUS [None]
  - NASOPHARYNGITIS [None]
  - CARDIAC FAILURE CONGESTIVE [None]
